FAERS Safety Report 6406972-8 (Version None)
Quarter: 2009Q4

REPORT INFORMATION
  Report Type: 
  Country: None (occurrence: None)
  Receive Date: 20091020
  Receipt Date: 20091007
  Transmission Date: 20100525
  Serious: Yes (Other)
  Sender: FDA-Public Use
  Company Number: JP-PFIZER INC-2009282056

PATIENT
  Age: 68 Year

DRUGS (2)
  1. EPIRUBICIN HCL [Suspect]
  2. CYCLOBLASTIN [Suspect]

REACTIONS (1)
  - PNEUMOCYSTIS JIROVECI PNEUMONIA [None]
